FAERS Safety Report 4802979-2 (Version None)
Quarter: 2005Q4

REPORT INFORMATION
  Report Type: 
  Country: None (occurrence: None)
  Receive Date: 20051013
  Receipt Date: 20050927
  Transmission Date: 20060501
  Serious: Yes (Death, Hospitalization)
  Sender: FDA-Public Use
  Company Number: FR_050907221

PATIENT
  Age: 60 Year
  Sex: Male

DRUGS (4)
  1. ALIMTA [Suspect]
     Indication: NON-SMALL CELL LUNG CANCER
     Dosage: 500 MG/M2/1 OTHER
     Dates: start: 20050912, end: 20050912
  2. FOLIC ACID [Concomitant]
  3. VITAMIN B-12 [Concomitant]
  4. NEULASTA [Concomitant]

REACTIONS (2)
  - FEBRILE NEUTROPENIA [None]
  - SEPTIC SHOCK [None]
